FAERS Safety Report 21273914 (Version 4)
Quarter: 2024Q3

REPORT INFORMATION
  Report Type: Spontaneous
  Country: GR (occurrence: GR)
  Receive Date: 20220831
  Receipt Date: 20240701
  Transmission Date: 20241017
  Serious: Yes (Death, Life-Threatening, Hospitalization, Other)
  Sender: PFIZER
  Company Number: GR-PFIZER INC-PV202200045934

PATIENT
  Age: 27 Week
  Sex: Male
  Weight: 0.81 kg

DRUGS (23)
  1. FLUCONAZOLE [Suspect]
     Active Substance: FLUCONAZOLE
     Indication: Fungaemia
     Dosage: 3 MG/KG, DAILY (2X/WEEK; PROPHYLACTICALLY ADDED)
  2. FLUCONAZOLE [Suspect]
     Active Substance: FLUCONAZOLE
     Indication: Fungal infection
     Dosage: 6 MG/KG (/48 H)
  3. FLUCONAZOLE [Suspect]
     Active Substance: FLUCONAZOLE
     Indication: Prophylaxis
  4. MEROPENEM [Suspect]
     Active Substance: MEROPENEM
     Indication: Bacteraemia
     Dosage: 40 MG/KG, DAILY (AND MAINTAINED FOR 10  DAYS)
  5. MEROPENEM [Suspect]
     Active Substance: MEROPENEM
     Indication: Klebsiella infection
     Dosage: 40 MG/KG, DAILY (SIX DAYS AFTER)
  6. METRONIDAZOLE [Suspect]
     Active Substance: METRONIDAZOLE
     Indication: Bacteraemia
     Dosage: 7 MG/KG (/48 H AND MAINTAINED FOR 10  DAYS)
  7. METRONIDAZOLE [Suspect]
     Active Substance: METRONIDAZOLE
     Indication: Klebsiella infection
  8. METRONIDAZOLE [Suspect]
     Active Substance: METRONIDAZOLE
     Indication: Evidence based treatment
  9. AMIKACIN [Suspect]
     Active Substance: AMIKACIN
     Indication: Bacteraemia
     Dosage: 15 MG/KG (/36 H, AND MAINTAINED FOR 10  DAYS)
  10. AMIKACIN [Suspect]
     Active Substance: AMIKACIN
     Indication: Klebsiella infection
  11. GENTAMICIN [Suspect]
     Active Substance: GENTAMICIN
     Indication: Bacteraemia
     Dosage: 4.5 MG/KG (/36 H, CONTINUED FOR ANOTHER 2 WEEKS)
  12. GENTAMICIN [Suspect]
     Active Substance: GENTAMICIN
     Indication: Klebsiella infection
     Dosage: 5 MG/KG (/48 H)
  13. GENTAMICIN [Suspect]
     Active Substance: GENTAMICIN
     Indication: Evidence based treatment
  14. AZTREONAM [Suspect]
     Active Substance: AZTREONAM
     Indication: Bacteraemia
     Dosage: 90 MG/KG, DAILY
  15. AZTREONAM [Suspect]
     Active Substance: AZTREONAM
     Indication: Klebsiella infection
  16. AMPHOTERICIN B [Suspect]
     Active Substance: AMPHOTERICIN B
     Indication: Fungaemia
     Dosage: 7 MG/KG, DAILY
  17. AMPHOTERICIN B [Suspect]
     Active Substance: AMPHOTERICIN B
     Indication: Fungal infection
  18. AMPICILLIN [Suspect]
     Active Substance: AMPICILLIN
     Indication: Bacteraemia
     Dosage: 200 MG/KG, DAILY
  19. AMPICILLIN [Suspect]
     Active Substance: AMPICILLIN
     Indication: Klebsiella infection
  20. AMPICILLIN [Suspect]
     Active Substance: AMPICILLIN
     Indication: Evidence based treatment
  21. COLISTIN [Suspect]
     Active Substance: COLISTIN
     Indication: Bacteraemia
     Dosage: 75000 IU/KG, DAILY
  22. COLISTIN [Suspect]
     Active Substance: COLISTIN
     Indication: Klebsiella infection
  23. SURFACTANT PROTEIN D (BIOMARKER) [Concomitant]
     Dosage: 200 MG/KG

REACTIONS (2)
  - Drug ineffective [Fatal]
  - Off label use [Unknown]
